FAERS Safety Report 26095786 (Version 1)
Quarter: 2025Q4

REPORT INFORMATION
  Report Type: Spontaneous
  Country: EU (occurrence: EU)
  Receive Date: 20251127
  Receipt Date: 20251127
  Transmission Date: 20260118
  Serious: Yes (Hospitalization)
  Sender: ASCENDIS PHARMA
  Company Number: EU-ASCENDIS PHARMA-2025EU013344

PATIENT

DRUGS (3)
  1. YORVIPATH [Suspect]
     Active Substance: PALOPEGTERIPARATIDE
     Indication: Hypoparathyroidism
     Dosage: UNK UNK, QD
     Route: 058
     Dates: start: 202505
  2. YORVIPATH [Suspect]
     Active Substance: PALOPEGTERIPARATIDE
     Dosage: 15 MICROGRAM, QD
     Route: 058
  3. YORVIPATH [Suspect]
     Active Substance: PALOPEGTERIPARATIDE
     Dosage: 12 MICROGRAM, QD
     Route: 058
     Dates: start: 202511

REACTIONS (4)
  - Hypercalcaemia [Unknown]
  - Cardiac failure [Unknown]
  - Acute kidney injury [Unknown]
  - Off label use [Recovered/Resolved]

NARRATIVE: CASE EVENT DATE: 20250623
